FAERS Safety Report 4313157-8 (Version None)
Quarter: 2004Q1

REPORT INFORMATION
  Report Type: 
  Country: None (occurrence: None)
  Receive Date: 20040304
  Receipt Date: 20040226
  Transmission Date: 20041129
  Serious: Yes (Death, Hospitalization)
  Sender: FDA-Public Use
  Company Number: 2004201043US

PATIENT
  Sex: Female

DRUGS (1)
  1. CAMPTOSAR [Suspect]
     Dosage: 81 MG

REACTIONS (5)
  - CONVULSION [None]
  - LETHARGY [None]
  - NEUTROPENIA [None]
  - SEPSIS [None]
  - SOMNOLENCE [None]
